FAERS Safety Report 6130410-6 (Version None)
Quarter: 2009Q1

REPORT INFORMATION
  Report Type: 
  Country: None (occurrence: None)
  Receive Date: 20090324
  Receipt Date: 20090320
  Transmission Date: 20090719
  Serious: Yes (Death, Life-Threatening)
  Sender: FDA-Public Use
  Company Number: PHHY2009SK10479

PATIENT

DRUGS (1)
  1. IMATINIB MESYLATE [Suspect]
     Dosage: UNK
     Dates: start: 20061201

REACTIONS (3)
  - DEATH [None]
  - GASTRIC PERFORATION [None]
  - GASTROINTESTINAL HAEMORRHAGE [None]
